FAERS Safety Report 7246150-6 (Version None)
Quarter: 2011Q1

REPORT INFORMATION
  Report Type: 
  Country: None (occurrence: None)
  Receive Date: 20110126
  Receipt Date: 20110119
  Transmission Date: 20110831
  Serious: Yes (Other)
  Sender: FDA-Public Use
  Company Number: A0908775A

PATIENT
  Sex: Male

DRUGS (1)
  1. PAXIL [Suspect]
     Route: 048

REACTIONS (11)
  - ANXIETY [None]
  - IMPULSIVE BEHAVIOUR [None]
  - ALCOHOLISM [None]
  - SUICIDE ATTEMPT [None]
  - DEREALISATION [None]
  - AFFECT LABILITY [None]
  - PARAESTHESIA [None]
  - WITHDRAWAL SYNDROME [None]
  - DEPRESSION [None]
  - PROMISCUITY [None]
  - MANIA [None]
